FAERS Safety Report 14028488 (Version 1)
Quarter: 2017Q3

REPORT INFORMATION
  Report Type: Spontaneous
  Country: US (occurrence: US)
  Receive Date: 20170930
  Receipt Date: 20170930
  Transmission Date: 20171128
  Serious: No
  Sender: FDA-Public Use
  Company Number: US-SA-2017SA047777

PATIENT
  Age: 66 Year
  Sex: Female
  Weight: 57.6 kg

DRUGS (8)
  1. HYOSCYAMINE. [Concomitant]
     Active Substance: HYOSCYAMINE
     Dosage: FREQUENCY:EVERY 4 HOURS AS NEEDED
  2. AMPYRA [Suspect]
     Active Substance: DALFAMPRIDINE
     Indication: GAIT DISTURBANCE
     Route: 048
     Dates: start: 20161111
  3. INDERAL [Concomitant]
     Active Substance: PROPRANOLOL HYDROCHLORIDE
     Route: 048
  4. VESICARE [Concomitant]
     Active Substance: SOLIFENACIN SUCCINATE
     Route: 048
  5. ESTRADIOL. [Concomitant]
     Active Substance: ESTRADIOL
  6. QUESTRAN [Suspect]
     Active Substance: CHOLESTYRAMINE
     Indication: DRUG DETOXIFICATION
     Route: 048
     Dates: start: 20170111
  7. AUBAGIO [Suspect]
     Active Substance: TERIFLUNOMIDE
     Route: 065
  8. ULTRAM [Concomitant]
     Active Substance: TRAMADOL HYDROCHLORIDE
     Route: 048

REACTIONS (2)
  - Asthenia [Not Recovered/Not Resolved]
  - Dizziness [Recovered/Resolved]
